FAERS Safety Report 5445920-4 (Version None)
Quarter: 2007Q3

REPORT INFORMATION
  Report Type: 
  Country: None (occurrence: None)
  Receive Date: 20070731
  Receipt Date: 20060608
  Transmission Date: 20080115
  Serious: Yes (Other)
  Sender: FDA-Public Use
  Company Number: US-2006-014602

PATIENT
  Age: 32 Year
  Sex: Female
  Weight: 86.2 kg

DRUGS (1)
  1. MAGNEVIST [Suspect]
     Indication: NUCLEAR MAGNETIC RESONANCE IMAGING BRAIN
     Dosage: 20 ML, 1 DOSE, INTRAVENOUS
     Route: 042
     Dates: start: 20060608, end: 20060608

REACTIONS (6)
  - DIZZINESS [None]
  - DYSPNOEA [None]
  - EYE SWELLING [None]
  - SNEEZING [None]
  - SWOLLEN TONGUE [None]
  - VOMITING [None]
